FAERS Safety Report 10962335 (Version 2)
Quarter: 2015Q2

REPORT INFORMATION
  Report Type: Report from Study
  Country: CA (occurrence: CA)
  Receive Date: 20150327
  Receipt Date: 20150521
  Transmission Date: 20150821
  Serious: Yes (Other)
  Sender: FDA-Public Use
  Company Number: PHHY2015CA025218

PATIENT
  Age: 61 Year
  Sex: Female

DRUGS (2)
  1. SANDOSTATIN [Suspect]
     Active Substance: OCTREOTIDE ACETATE
     Indication: NEOPLASM MALIGNANT
     Dosage: 150 MCG, BID (FOR 6 WEEKS)
     Route: 058
     Dates: start: 20140815, end: 201409
  2. SANDOSTATIN LAR DEPOT [Suspect]
     Active Substance: OCTREOTIDE ACETATE
     Indication: NEOPLASM MALIGNANT
     Dosage: 20 MG, EVERY 4 WEEKS
     Route: 030
     Dates: start: 20140912

REACTIONS (8)
  - Blood pressure increased [Unknown]
  - Skin sensitisation [Unknown]
  - Malaise [Unknown]
  - Anxiety [Unknown]
  - Fatigue [Unknown]
  - Hypertension [Unknown]
  - Wound secretion [Unknown]
  - Blood pressure systolic increased [Unknown]

NARRATIVE: CASE EVENT DATE: 20150227
